FAERS Safety Report 8321708-1 (Version None)
Quarter: 2012Q2

REPORT INFORMATION
  Report Type: 
  Country: None (occurrence: None)
  Receive Date: 20120430
  Receipt Date: 20120426
  Transmission Date: 20120825
  Serious: Yes (Death)
  Sender: FDA-Public Use
  Company Number: JP-ASTRAZENECA-2012SE27372

PATIENT
  Age: 72 Year
  Sex: Male

DRUGS (6)
  1. S1 [Concomitant]
     Dosage: DECREASED TO 70%
  2. NEDEPLATIN [Concomitant]
     Indication: CHEMOTHERAPY
     Dosage: 135 MG/BODY
     Dates: start: 20110217
  3. NEDEPLATIN [Concomitant]
     Dosage: DECREASED TO 70%
  4. CEFPIROME SULFATE [Concomitant]
     Indication: ANTIBIOTIC THERAPY
  5. S1 [Concomitant]
     Indication: CHEMOTHERAPY
     Dosage: 120 MG/BODY
     Dates: start: 20110217
  6. MEROPENEM [Suspect]
     Indication: PYREXIA
     Route: 042

REACTIONS (1)
  - INTERSTITIAL LUNG DISEASE [None]
